FAERS Safety Report 4308331-0 (Version None)
Quarter: 2004Q1

REPORT INFORMATION
  Report Type: 
  Country: None (occurrence: None)
  Receive Date: 20040225
  Receipt Date: 20031003
  Transmission Date: 20041129
  Serious: Yes (Other)
  Sender: FDA-Public Use
  Company Number: WAES 0310USA00650

PATIENT
  Age: 60 Year
  Sex: Female
  Weight: 90.7194 kg

DRUGS (10)
  1. ZOCOR [Suspect]
     Indication: BLOOD CHOLESTEROL INCREASED
     Dosage: PO
     Route: 048
  2. ACTOS [Concomitant]
  3. EVISTA [Concomitant]
  4. GLUCOPHAGE [Concomitant]
  5. LOPID [Concomitant]
  6. NORVASC [Concomitant]
  7. PRINIVIL [Concomitant]
  8. STARLIX [Concomitant]
  9. SYNTHROID [Concomitant]
  10. TRICOR [Concomitant]

REACTIONS (1)
  - RASH [None]
